FAERS Safety Report 15410843 (Version 1)
Quarter: 2018Q3

REPORT INFORMATION
  Report Type: Spontaneous
  Country: US (occurrence: US)
  Receive Date: 20180919
  Receipt Date: 20180919
  Transmission Date: 20181010
  Serious: No
  Sender: FDA-Public Use
  Company Number: None

PATIENT
  Sex: Male

DRUGS (1)
  1. BUPROPION (STRENGTH UNKNOWN) [Suspect]
     Active Substance: BUPROPION

REACTIONS (2)
  - Treatment failure [None]
  - Palpitations [None]
